FAERS Safety Report 5909883-7 (Version None)
Quarter: 2008Q4

REPORT INFORMATION
  Report Type: 
  Country: None (occurrence: None)
  Receive Date: 20081003
  Receipt Date: 20081003
  Transmission Date: 20090506
  Serious: No
  Sender: FDA-Public Use
  Company Number: None

PATIENT
  Age: 69 Year
  Sex: Male

DRUGS (1)
  1. HYLAN G-F 20 [Suspect]
     Indication: MONARTHRITIS
     Dosage: 16 MG  ONCE  OTHER
     Route: 050
     Dates: start: 20080711, end: 20080714

REACTIONS (1)
  - SYSTEMIC INFLAMMATORY RESPONSE SYNDROME [None]
